FAERS Safety Report 10648080 (Version 1)
Quarter: 2014Q4

REPORT INFORMATION
  Report Type: Spontaneous
  Country: US (occurrence: None)
  Receive Date: 20141210
  Receipt Date: 20141210
  Transmission Date: 20150529
  Serious: Yes (Other)
  Sender: FDA-Public Use
  Company Number: UNT-2014-003948

PATIENT
  Age: 44 Year
  Sex: Female
  Weight: 44.9 kg

DRUGS (2)
  1. REMODULIN [Suspect]
     Active Substance: TREPROSTINIL
     Indication: PULMONARY ARTERIAL HYPERTENSION
     Dosage: 0.160UG/KG, 0.164 UG/KGMIN, CONTINUINTG, SUBCUTANEIOUS
     Route: 058
     Dates: start: 20110523
  2. COUMADIN /00014802/ (WARFARIN SODIUM) [Concomitant]

REACTIONS (7)
  - Thrombosis [None]
  - Haematoma [None]
  - Peripheral swelling [None]
  - Pain in extremity [None]
  - Pain [None]
  - Muscle tightness [None]
  - Discomfort [None]

NARRATIVE: CASE EVENT DATE: 201407
